FAERS Safety Report 14394389 (Version 2)
Quarter: 2019Q1

REPORT INFORMATION
  Report Type: Spontaneous
  Country: US (occurrence: US)
  Receive Date: 20180116
  Receipt Date: 20190115
  Transmission Date: 20190417
  Serious: No
  Sender: FDA-Public Use
  Company Number: US-REGENERON PHARMACEUTICALS, INC.-2017-26981

PATIENT

DRUGS (4)
  1. MERTHIOLATE [Suspect]
     Active Substance: BENZALKONIUM CHLORIDE
     Indication: INFECTION PROPHYLAXIS
     Dosage: UNK
     Dates: start: 201707
  2. MERCUROCHROME [Suspect]
     Active Substance: BENZALKONIUM CHLORIDE
     Indication: PREMEDICATION
     Dosage: EVERY 7 WEEKS
     Route: 047
  3. EYLEA [Suspect]
     Active Substance: AFLIBERCEPT
     Indication: EYE HAEMORRHAGE
     Dosage: EVERY 7 WEEKS
     Route: 031
     Dates: start: 2016, end: 20171111
  4. NOVOCAIN [Concomitant]
     Active Substance: PROCAINE HYDROCHLORIDE
     Indication: PRODUCT USED FOR UNKNOWN INDICATION
     Dosage: UNK
     Route: 008

REACTIONS (3)
  - Eye pain [Not Recovered/Not Resolved]
  - Off label use [Not Recovered/Not Resolved]
  - Eye irritation [Not Recovered/Not Resolved]

NARRATIVE: CASE EVENT DATE: 2016
